FAERS Safety Report 7773561-2 (Version None)
Quarter: 2011Q3

REPORT INFORMATION
  Report Type: 
  Country: None (occurrence: None)
  Receive Date: 20110922
  Receipt Date: 20110919
  Transmission Date: 20111222
  Serious: Yes (Other)
  Sender: FDA-Public Use
  Company Number: US-CEPHALON-US023818

PATIENT
  Sex: Female
  Weight: 75 kg

DRUGS (23)
  1. DURAGESIC-100 [Concomitant]
     Route: 062
     Dates: start: 20040101
  2. WARFARIN SODIUM [Concomitant]
     Indication: BLOOD DISORDER
     Dosage: 7.5 MG M + F AND 5 MG REST OF WEEK
     Route: 048
     Dates: start: 20050101
  3. VESICARE [Concomitant]
  4. VITRON C [Concomitant]
     Indication: SUPPLEMENTATION THERAPY
     Dosage: 1 TABLET TWICE A DAY
     Route: 048
  5. ADVAIR DISKUS 100/50 [Concomitant]
     Dates: start: 20010101
  6. PREDNISONE [Concomitant]
  7. FENTORA [Suspect]
     Indication: BACK PAIN
     Route: 002
     Dates: start: 20070101, end: 20090201
  8. LYRICA [Concomitant]
     Indication: PAIN
     Route: 048
     Dates: start: 20070601
  9. FUROSEMIDE [Concomitant]
     Indication: SWELLING
     Route: 048
  10. OMEPRAZOLE [Concomitant]
     Route: 048
  11. CALCIUM CARBONATE [Concomitant]
     Indication: SUPPLEMENTATION THERAPY
     Route: 048
  12. TETRACYCLINE [Concomitant]
     Dates: start: 20080101
  13. FOLIC ACID [Concomitant]
     Indication: SUPPLEMENTATION THERAPY
     Route: 048
  14. ALBUTEROL [Concomitant]
  15. LYRICA [Concomitant]
     Dates: start: 20041101
  16. CENTRUM [Concomitant]
     Indication: SUPPLEMENTATION THERAPY
     Route: 048
  17. ALPRAZOLAM [Concomitant]
     Dates: start: 20090201
  18. FORTEO [Concomitant]
     Dates: start: 20070528
  19. ZOLPIDEM [Concomitant]
     Indication: SLEEP DISORDER
     Route: 048
  20. HYDROCORTISONE [Concomitant]
     Dosage: 15 MG IN AM, 10 MG AT NOON AND AT BEDTIME
     Route: 048
  21. FENTORA [Suspect]
     Indication: PAIN IN EXTREMITY
     Route: 002
     Dates: start: 20080530, end: 20090201
  22. CYMBALTA [Concomitant]
     Indication: PAIN
     Route: 048
     Dates: start: 20080101
  23. PAROXETINE HYDROCHLORIDE [Concomitant]
     Route: 048

REACTIONS (3)
  - TOOTH FRACTURE [None]
  - DENTAL CARIES [None]
  - SOMNOLENCE [None]
